FAERS Safety Report 5839835-7 (Version None)
Quarter: 2008Q3

REPORT INFORMATION
  Report Type: 
  Country: None (occurrence: None)
  Receive Date: 20080807
  Receipt Date: 20080730
  Transmission Date: 20090109
  Serious: Yes (Life-Threatening, Hospitalization)
  Sender: FDA-Public Use
  Company Number: 2008AL009043

PATIENT
  Age: 81 Year
  Sex: Male
  Weight: 81.6475 kg

DRUGS (1)
  1. DIGOXIN [Suspect]
     Indication: CARDIAC DISORDER
     Dosage: PO; YEARS
     Route: 048

REACTIONS (3)
  - ABASIA [None]
  - CARDIOACTIVE DRUG LEVEL INCREASED [None]
  - NO THERAPEUTIC RESPONSE [None]
